FAERS Safety Report 8290646-5 (Version None)
Quarter: 2012Q2

REPORT INFORMATION
  Report Type: 
  Country: None (occurrence: None)
  Receive Date: 20120417
  Receipt Date: 20111027
  Transmission Date: 20120825
  Serious: No
  Sender: FDA-Public Use
  Company Number: US-ASTRAZENECA-2011SE65305

PATIENT

DRUGS (18)
  1. ANTIVERT [Concomitant]
  2. XANAX [Concomitant]
  3. BENICAR [Concomitant]
  4. HUMALOG [Concomitant]
  5. CLONIDINE [Concomitant]
  6. NEXIUM [Suspect]
     Route: 048
  7. KEFLEX [Concomitant]
  8. ALBUTEROL SULFATE [Concomitant]
  9. ALLEGRA [Concomitant]
  10. ERGOCALCIFEROL [Concomitant]
  11. NORVASC [Concomitant]
  12. TOPROL-XL [Suspect]
     Route: 048
  13. REGRANEX [Concomitant]
  14. VITAMIN D [Concomitant]
  15. CALCIUM CARBONATE [Concomitant]
  16. REGLAN [Concomitant]
  17. SUCRALFATE [Concomitant]
  18. VITAMIN B-12 [Concomitant]

REACTIONS (8)
  - HYPERTENSION [None]
  - HEPATIC FUNCTION ABNORMAL [None]
  - PRURITUS [None]
  - TYPE V HYPERLIPIDAEMIA [None]
  - MYALGIA [None]
  - DIZZINESS [None]
  - RENAL IMPAIRMENT [None]
  - HIATUS HERNIA [None]
